FAERS Safety Report 7744687-4 (Version None)
Quarter: 2011Q3

REPORT INFORMATION
  Report Type: 
  Country: None (occurrence: None)
  Receive Date: 20110912
  Receipt Date: 20110908
  Transmission Date: 20111222
  Serious: Yes (Other)
  Sender: FDA-Public Use
  Company Number: PHHY2011US14325

PATIENT
  Sex: Female

DRUGS (2)
  1. SANDOSTATIN LAR [Suspect]
     Dosage: 6 VIALS EVERY 90 DAYS
  2. SANDOSTATIN LAR [Suspect]
     Dosage: 30 MG, TIW

REACTIONS (2)
  - DISEASE PROGRESSION [None]
  - ABDOMINAL NEOPLASM [None]
